FAERS Safety Report 10924271 (Version 1)
Quarter: 2015Q1

REPORT INFORMATION
  Report Type: Spontaneous
  Country: US (occurrence: None)
  Receive Date: 20150129
  Receipt Date: 20150129
  Transmission Date: 20150721
  Serious: Yes (Other)
  Sender: FDA-Public Use
  Company Number: 103689U

PATIENT
  Sex: Female
  Weight: 63 kg

DRUGS (3)
  1. VIMPAT [Suspect]
     Active Substance: LACOSAMIDE
     Indication: SEIZURE
     Dosage: STRENGTH: 50MG, 2 TABLETS
     Dates: start: 201308, end: 20130903
  2. VIMPAT [Suspect]
     Active Substance: LACOSAMIDE
     Indication: SEIZURE
     Dates: start: 201311, end: 201311
  3. KEPPRA [Suspect]
     Active Substance: LEVETIRACETAM
     Indication: SEIZURE
     Dates: start: 201303

REACTIONS (3)
  - Petit mal epilepsy [None]
  - Seizure [None]
  - Vision blurred [None]

NARRATIVE: CASE EVENT DATE: 2013
